FAERS Safety Report 9269606 (Version 1)
Quarter: 2013Q2

REPORT INFORMATION
  Report Type: Spontaneous
  Country: FI (occurrence: FI)
  Receive Date: 20130503
  Receipt Date: 20130503
  Transmission Date: 20140414
  Serious: Yes (Other)
  Sender: FDA-Public Use
  Company Number: FI-ABBOTT-13P-055-1047786-00

PATIENT
  Age: 75 Year
  Sex: Female

DRUGS (4)
  1. HUMIRA [Suspect]
     Indication: RHEUMATOID ARTHRITIS
  2. HUMIRA [Suspect]
  3. ORMOX [Concomitant]
     Indication: PRODUCT USED FOR UNKNOWN INDICATION
  4. LONG-LASTING NITRO [Concomitant]
     Indication: PRODUCT USED FOR UNKNOWN INDICATION

REACTIONS (4)
  - Bone cyst [Unknown]
  - Hip arthroplasty [Unknown]
  - Haemorrhage [Unknown]
  - Haemoglobin decreased [Unknown]
